FAERS Safety Report 19196867 (Version 1)
Quarter: 2021Q2

REPORT INFORMATION
  Report Type: Spontaneous
  Country: US (occurrence: US)
  Receive Date: 20210430
  Receipt Date: 20210430
  Transmission Date: 20210717
  Serious: No
  Sender: FDA-Public Use
  Company Number: US-ELI_LILLY_AND_COMPANY-US202104011437

PATIENT

DRUGS (2)
  1. REYVOW [Suspect]
     Active Substance: LASMIDITAN
     Indication: PRODUCT USED FOR UNKNOWN INDICATION
     Dosage: 100 MG, UNKNOWN
     Route: 065
  2. REYVOW [Suspect]
     Active Substance: LASMIDITAN
     Dosage: 50 MG, UNKNOWN
     Route: 065

REACTIONS (4)
  - Headache [Recovered/Resolved]
  - Serotonin syndrome [Recovered/Resolved]
  - Fatigue [Unknown]
  - Dizziness [Unknown]
